FAERS Safety Report 13406814 (Version 1)
Quarter: 2017Q2

REPORT INFORMATION
  Report Type: Spontaneous
  Country: TH (occurrence: TH)
  Receive Date: 20170405
  Receipt Date: 20170405
  Transmission Date: 20170830
  Serious: Yes (Other)
  Sender: FDA-Public Use
  Company Number: PHHY2017TH047792

PATIENT
  Age: 60 Year
  Sex: Male

DRUGS (4)
  1. MESNA. [Suspect]
     Active Substance: MESNA
     Indication: URINARY BLADDER SARCOMA
     Dosage: UNK
     Route: 065
     Dates: start: 20150727
  2. IFOSFAMIDE. [Suspect]
     Active Substance: IFOSFAMIDE
     Indication: URINARY BLADDER SARCOMA
     Dosage: 1500 MG/M2, QD
     Route: 065
     Dates: start: 20150727
  3. G-CSF [Suspect]
     Active Substance: GRANULOCYTE COLONY-STIMULATING FACTOR NOS
     Indication: URINARY BLADDER SARCOMA
     Dosage: UNK
     Route: 065
     Dates: start: 20150727
  4. DOXORUBICIN [Suspect]
     Active Substance: DOXORUBICIN
     Indication: URINARY BLADDER SARCOMA
     Dosage: 20 MG/M2, QD
     Route: 065
     Dates: start: 20150727

REACTIONS (1)
  - Hemiparesis [Unknown]

NARRATIVE: CASE EVENT DATE: 20160331
